FAERS Safety Report 20037602 (Version 1)
Quarter: 2021Q4

REPORT INFORMATION
  Report Type: Spontaneous
  Country: US (occurrence: US)
  Receive Date: 20211105
  Receipt Date: 20211105
  Transmission Date: 20220303
  Serious: No
  Sender: FDA-Public Use
  Company Number: US-GSKCCFUS-Case-01205983_AE-70613

PATIENT
  Sex: Female

DRUGS (2)
  1. VENTOLIN HFA [Suspect]
     Active Substance: ALBUTEROL SULFATE
     Indication: Asthma
     Dosage: UNK UNK, Z (TWICE A WEEK)
  2. PEPPERMINT [Concomitant]
     Active Substance: PEPPERMINT
     Indication: Asthma
     Dosage: UNK

REACTIONS (1)
  - Palpitations [Not Recovered/Not Resolved]
